FAERS Safety Report 11324211 (Version 1)
Quarter: 2015Q3

REPORT INFORMATION
  Report Type: Report from Study
  Country: BR (occurrence: BR)
  Receive Date: 20150730
  Receipt Date: 20150730
  Transmission Date: 20151125
  Serious: Yes (Disabling, Other)
  Sender: FDA-Public Use
  Company Number: BR-ABBVIE-15K-020-1433559-00

PATIENT
  Age: 30 Year
  Sex: Female
  Weight: 65 kg

DRUGS (5)
  1. IMOSEC [Concomitant]
     Active Substance: LOPERAMIDE
     Indication: CROHN^S DISEASE
     Route: 048
     Dates: start: 20150517
  2. HUMIRA [Suspect]
     Active Substance: ADALIMUMAB
     Dosage: LOADING DOSE, WEEK2
     Route: 058
     Dates: start: 2014, end: 2014
  3. HYDROCORTISONE. [Concomitant]
     Active Substance: HYDROCORTISONE
     Indication: CROHN^S DISEASE
     Route: 054
     Dates: start: 20150702
  4. HUMIRA [Suspect]
     Active Substance: ADALIMUMAB
     Indication: CROHN^S DISEASE
     Dosage: LOADING DOSE, WEEK0
     Route: 058
     Dates: start: 201401, end: 201401
  5. PRELONE [Concomitant]
     Active Substance: PREDNISOLONE
     Indication: CROHN^S DISEASE
     Route: 048
     Dates: start: 20150702

REACTIONS (5)
  - Gastrointestinal pain [Unknown]
  - Pulmonary tuberculosis [Recovered/Resolved]
  - Crohn^s disease [Unknown]
  - Gastrointestinal inflammation [Unknown]
  - Proctitis [Not Recovered/Not Resolved]

NARRATIVE: CASE EVENT DATE: 201401
